FAERS Safety Report 8384838-4 (Version None)
Quarter: 2012Q2

REPORT INFORMATION
  Report Type: 
  Country: None (occurrence: None)
  Receive Date: 20120524
  Receipt Date: 20120514
  Transmission Date: 20120825
  Serious: Yes (Hospitalization, Other)
  Sender: FDA-Public Use
  Company Number: FR-JNJFOC-20111201317

PATIENT
  Age: 63 Year
  Sex: Male

DRUGS (7)
  1. REMICADE [Suspect]
     Indication: CROHN'S DISEASE
     Route: 042
     Dates: start: 20111011
  2. REMICADE [Suspect]
     Route: 042
     Dates: start: 20111109
  3. REMICADE [Suspect]
     Route: 042
     Dates: start: 20120103
  4. REMICADE [Suspect]
     Route: 042
     Dates: start: 20110928
  5. REMICADE [Suspect]
     Route: 042
     Dates: start: 20120424
  6. POTASSIUM CHLORIDE [Concomitant]
     Dosage: RECEIVED BY IV, THEN BY MOUTH
     Route: 048
     Dates: start: 20120228
  7. REMICADE [Suspect]
     Route: 042
     Dates: start: 20120228

REACTIONS (2)
  - LEUKOCYTOSIS [None]
  - MANTLE CELL LYMPHOMA [None]
